FAERS Safety Report 10550164 (Version 1)
Quarter: 2014Q4

REPORT INFORMATION
  Report Type: Spontaneous
  Country: GB (occurrence: GB)
  Receive Date: 20141028
  Receipt Date: 20141028
  Transmission Date: 20150529
  Serious: Yes (Hospitalization, Other)
  Sender: FDA-Public Use
  Company Number: GB-PFIZER INC-2014293175

PATIENT
  Age: 4 Year
  Sex: Male

DRUGS (7)
  1. ERYTHROMYCIN ETHYL SUCCINATE /00020901/ [Concomitant]
     Indication: INFECTION PROPHYLAXIS
     Route: 048
  2. METHYLPREDNISOLONE. [Suspect]
     Active Substance: METHYLPREDNISOLONE
     Dosage: UNK
     Route: 042
     Dates: start: 201404
  3. FRUSOL [Concomitant]
     Indication: NEPHROTIC SYNDROME
     Dosage: CURRENT DOSE IS 20MG BD. PATIENT WAS TAKING 10MG BD WHEN THE ADR OCCURED
     Route: 048
  4. AMILORIDE [Concomitant]
     Active Substance: AMILORIDE
     Dosage: 2.5 MG, 1X/DAY
     Route: 048
  5. OMEPRAZOLE. [Concomitant]
     Active Substance: OMEPRAZOLE
     Dosage: WAS TAKING 10MG OD AT THE TIME THE ADR OCCURED. THIS HAS SINCE BEEN STOPPED
     Route: 048
  6. PREDNISOLONE. [Concomitant]
     Active Substance: PREDNISOLONE
     Dosage: 25 MG, ALTERNATE DAY
     Route: 048
  7. CICLOSPORIN [Concomitant]
     Active Substance: CYCLOSPORINE
     Indication: NEPHROTIC SYNDROME
     Dosage: PATIENT WAS TAKING 50MG BD
     Route: 048

REACTIONS (1)
  - Pruritus [Recovered/Resolved]
